FAERS Safety Report 8399584-0 (Version None)
Quarter: 2012Q2

REPORT INFORMATION
  Report Type: 
  Country: None (occurrence: None)
  Receive Date: 20120323
  Receipt Date: 20110427
  Transmission Date: 20120825
  Serious: Yes (Other)
  Sender: FDA-Public Use
  Company Number: 163-21880-11011694

PATIENT
  Age: 55 Year
  Sex: Male
  Weight: 84.8226 kg

DRUGS (3)
  1. LORTAB [Concomitant]
  2. REVLIMID [Suspect]
     Indication: MULTIPLE MYELOMA
     Dosage: 10 MG, DAILY X 14/21 DAYS, PO
     Route: 048
     Dates: start: 20101101
  3. VELCADE [Concomitant]

REACTIONS (3)
  - PAIN IN EXTREMITY [None]
  - OEDEMA PERIPHERAL [None]
  - LIMB DISCOMFORT [None]
